FAERS Safety Report 5358792-3 (Version None)
Quarter: 2007Q2

REPORT INFORMATION
  Report Type: 
  Country: None (occurrence: None)
  Receive Date: 20070615
  Receipt Date: 20070612
  Transmission Date: 20071010
  Serious: Yes (Life-Threatening, Other)
  Sender: FDA-Public Use
  Company Number: CHWYE837012JUN07

PATIENT
  Age: 1 Month
  Sex: Female
  Weight: 2.25 kg

DRUGS (2)
  1. EFFEXOR [Suspect]
     Route: 064
  2. LEXOTANIL [Suspect]
     Route: 064

REACTIONS (1)
  - ACUTE LYMPHOCYTIC LEUKAEMIA [None]
